FAERS Safety Report 6415311-8 (Version None)
Quarter: 2009Q4

REPORT INFORMATION
  Report Type: 
  Country: None (occurrence: None)
  Receive Date: 20091027
  Receipt Date: 20091015
  Transmission Date: 20100525
  Serious: Yes (Hospitalization)
  Sender: FDA-Public Use
  Company Number: PHEH2009US13958

PATIENT
  Sex: Female

DRUGS (2)
  1. NEORAL [Suspect]
     Dosage: 25 MG, UNK
  2. NEORAL [Suspect]
     Dosage: 100 MG, UNK

REACTIONS (1)
  - RENAL DISORDER [None]
